FAERS Safety Report 10416803 (Version 2)
Quarter: 2014Q4

REPORT INFORMATION
  Report Type: Spontaneous
  Country: US (occurrence: None)
  Receive Date: 20140825
  Receipt Date: 20141015
  Transmission Date: 20150528
  Serious: Yes (Hospitalization)
  Sender: FDA-Public Use
  Company Number: UTC-045668

PATIENT
  Age: 4 Year
  Sex: Male
  Weight: 16.7 kg

DRUGS (4)
  1. REMODULIN [Suspect]
     Active Substance: TREPROSTINIL
     Indication: COR PULMONALE CHRONIC
     Route: 041
     Dates: start: 20100611
  2. TYVASO [Suspect]
     Active Substance: TREPROSTINIL
     Indication: COR PULMONALE CHRONIC
     Route: 055
     Dates: start: 20130823
  3. ADCIRCA (TADAFINIL) [Concomitant]
  4. TRACLEER [Concomitant]
     Active Substance: BOSENTAN\BOSENTAN MONOHYDRATE

REACTIONS (5)
  - Cough [None]
  - Pulmonary arterial hypertension [None]
  - Oxygen saturation decreased [None]
  - Rhinorrhoea [None]
  - Viral infection [None]

NARRATIVE: CASE EVENT DATE: 20140227
